FAERS Safety Report 13910918 (Version 1)
Quarter: 2017Q3

REPORT INFORMATION
  Report Type: Spontaneous
  Country: US (occurrence: US)
  Receive Date: 20170828
  Receipt Date: 20170828
  Transmission Date: 20171127
  Serious: Yes (Death, Hospitalization)
  Sender: FDA-Public Use
  Company Number: US-IMPAX LABORATORIES, INC-2017-IPXL-02485

PATIENT
  Age: 75 Year
  Sex: Female

DRUGS (2)
  1. DIGOXIN. [Suspect]
     Active Substance: DIGOXIN
     Indication: HYPOTENSION
     Dosage: UNK
     Route: 065
  2. DEXTROSE. [Suspect]
     Active Substance: DEXTROSE
     Indication: HYPOGLYCAEMIA
     Dosage: TOTAL OF 75 GRAMS, INFUSION
     Route: 042

REACTIONS (4)
  - Cardiac arrest [Fatal]
  - Acute kidney injury [Unknown]
  - Transaminases increased [Unknown]
  - Carcinoid crisis [Fatal]
